FAERS Safety Report 4578368-5 (Version None)
Quarter: 2005Q1

REPORT INFORMATION
  Report Type: 
  Country: None (occurrence: None)
  Receive Date: 20050202
  Receipt Date: 20050202
  Transmission Date: 20050727
  Serious: Yes (Hospitalization)
  Sender: FDA-Public Use
  Company Number: None

PATIENT
  Age: 69 Year
  Sex: Male
  Weight: 86.1834 kg

DRUGS (4)
  1. LIPITOR [Suspect]
     Indication: BLOOD CHOLESTEROL DECREASED
     Dosage: 20 MG PO QD
     Route: 048
     Dates: start: 20040401
  2. ASP [Concomitant]
  3. PLAVIX [Concomitant]
  4. PREVACID [Concomitant]

REACTIONS (3)
  - CHILLS [None]
  - DRUG HYPERSENSITIVITY [None]
  - PYREXIA [None]
